FAERS Safety Report 13074697 (Version 1)
Quarter: 2016Q4

REPORT INFORMATION
  Report Type: Spontaneous
  Country: US (occurrence: US)
  Receive Date: 20161230
  Receipt Date: 20161230
  Transmission Date: 20170207
  Serious: No
  Sender: FDA-Public Use
  Company Number: US-TEVA-673776USA

PATIENT
  Sex: Female
  Weight: 57.66 kg

DRUGS (1)
  1. TRAZODONE [Suspect]
     Active Substance: TRAZODONE HYDROCHLORIDE
     Indication: INSOMNIA
     Dosage: 200 MILLIGRAM DAILY;
     Route: 065

REACTIONS (3)
  - Drug effect decreased [Unknown]
  - Insomnia [Unknown]
  - Intentional product misuse [Unknown]
